FAERS Safety Report 12306938 (Version 1)
Quarter: 2016Q2

REPORT INFORMATION
  Report Type: Spontaneous
  Country: US (occurrence: US)
  Receive Date: 20160426
  Receipt Date: 20160426
  Transmission Date: 20160815
  Serious: Yes (Other)
  Sender: FDA-Public Use
  Company Number: US-UNICHEM LABORATORIES LIMITED-UCM201604-000061

PATIENT
  Sex: Female
  Weight: 95.25 kg

DRUGS (4)
  1. TIZANIDINE. [Suspect]
     Active Substance: TIZANIDINE
     Indication: FIBROMYALGIA
     Route: 048
  2. UNISOM SLEEPTABS [Suspect]
     Active Substance: DOXYLAMINE SUCCINATE
     Indication: SLEEP DISORDER
  3. LYRICA [Suspect]
     Active Substance: PREGABALIN
     Indication: PAIN
  4. NORCO- 7 [Concomitant]

REACTIONS (11)
  - Eyelid margin crusting [Not Recovered/Not Resolved]
  - Loss of consciousness [Recovering/Resolving]
  - Weight increased [Not Recovered/Not Resolved]
  - Product use issue [Unknown]
  - Product preparation error [Unknown]
  - Somnolence [Not Recovered/Not Resolved]
  - Face injury [Recovering/Resolving]
  - Dry mouth [Not Recovered/Not Resolved]
  - Fall [Recovering/Resolving]
  - Dementia [Recovering/Resolving]
  - Vision blurred [Unknown]

NARRATIVE: CASE EVENT DATE: 2016
